FAERS Safety Report 11292239 (Version 3)
Quarter: 2015Q3

REPORT INFORMATION
  Report Type: Spontaneous
  Country: US (occurrence: US)
  Receive Date: 20150722
  Receipt Date: 20150804
  Transmission Date: 20151125
  Serious: Yes (Hospitalization, Other)
  Sender: FDA-Public Use
  Company Number: US-PFIZER INC-2015238673

PATIENT
  Age: 17 Year
  Sex: Male

DRUGS (1)
  1. DILANTIN [Suspect]
     Active Substance: PHENYTOIN
     Indication: SEIZURE
     Dosage: 100 MG, 3X/DAY

REACTIONS (7)
  - Eosinophil count increased [Recovered/Resolved]
  - Hepatomegaly [Recovered/Resolved]
  - Jaundice [Recovered/Resolved]
  - Dermatitis exfoliative [Recovered/Resolved]
  - Pruritus [Recovered/Resolved]
  - Drug-induced liver injury [Recovered/Resolved]
  - White blood cell count increased [Recovered/Resolved]
